FAERS Safety Report 20187686 (Version 3)
Quarter: 2022Q1

REPORT INFORMATION
  Report Type: Spontaneous
  Country: SE (occurrence: SE)
  Receive Date: 20211215
  Receipt Date: 20220214
  Transmission Date: 20220423
  Serious: Yes (Death, Hospitalization)
  Sender: FDA-Public Use
  Company Number: SE-PFIZER INC-2016452623

PATIENT
  Age: 92 Year
  Sex: Female

DRUGS (5)
  1. FRAGMIN [Interacting]
     Active Substance: DALTEPARIN SODIUM
     Indication: Atrial fibrillation
     Dosage: 5000 IU, 10X0.2 MM DAILY
     Dates: start: 201609, end: 201611
  2. FRAGMIN [Interacting]
     Active Substance: DALTEPARIN SODIUM
     Indication: Aortic stenosis
  3. FRAGMIN [Interacting]
     Active Substance: DALTEPARIN SODIUM
     Indication: Prophylaxis
  4. METOPROLOL TARTRATE [Concomitant]
     Active Substance: METOPROLOL TARTRATE
     Dosage: UNK
  5. FUROSEMIDE [Concomitant]
     Active Substance: FUROSEMIDE
     Dosage: UNK

REACTIONS (6)
  - Death [Fatal]
  - Trigeminal neuralgia [Unknown]
  - Feeding disorder [Unknown]
  - Dysphagia [Unknown]
  - Drug interaction [Unknown]
  - Gout [Unknown]

NARRATIVE: CASE EVENT DATE: 20161212
